FAERS Safety Report 4514495-6 (Version None)
Quarter: 2004Q4

REPORT INFORMATION
  Report Type: 
  Country: None (occurrence: None)
  Receive Date: 20041126
  Receipt Date: 20041109
  Transmission Date: 20050328
  Serious: Yes (Life-Threatening)
  Sender: FDA-Public Use
  Company Number: PIR 0411015A

PATIENT
  Sex: Male
  Weight: 6 kg

DRUGS (2)
  1. TROPHAMINE [Suspect]
     Indication: CONGENITAL INTESTINAL MALFORMATION
     Dosage: 1.1 GRAMS DAILY IN TPN
     Dates: start: 20040430, end: 20040915
  2. TROPHAMINE [Suspect]
     Indication: SHORT-BOWEL SYNDROME
     Dosage: 1.1 GRAMS DAILY IN TPN
     Dates: start: 20040430, end: 20040915

REACTIONS (4)
  - BILIRUBIN CONJUGATED INCREASED [None]
  - BLOOD BILIRUBIN INCREASED [None]
  - LIVER FUNCTION TEST ABNORMAL [None]
  - SEPSIS [None]
